FAERS Safety Report 23619591 (Version 1)
Quarter: 2024Q1

REPORT INFORMATION
  Report Type: Report from Study
  Country: PR (occurrence: PR)
  Receive Date: 20240312
  Receipt Date: 20240312
  Transmission Date: 20240410
  Serious: Yes (Other)
  Sender: FDA-Public Use
  Company Number: PR-ABBVIE-5673689

PATIENT
  Sex: Female
  Weight: 124 kg

DRUGS (2)
  1. HUMIRA [Suspect]
     Active Substance: ADALIMUMAB
     Indication: Rheumatoid arthritis
     Dosage: 40MG/0.8ML
     Route: 058
     Dates: start: 20151015
  2. HUMIRA [Suspect]
     Active Substance: ADALIMUMAB

REACTIONS (2)
  - Neck mass [Not Recovered/Not Resolved]
  - Neck pain [Not Recovered/Not Resolved]

NARRATIVE: CASE EVENT DATE: 20230101
